FAERS Safety Report 9248384 (Version 1)
Quarter: 2013Q2

REPORT INFORMATION
  Report Type: Spontaneous
  Country: CH (occurrence: CH)
  Receive Date: 20130423
  Receipt Date: 20130423
  Transmission Date: 20140414
  Serious: Yes (Hospitalization)
  Sender: FDA-Public Use
  Company Number: CH-JNJFOC-20130406100

PATIENT
  Sex: Female
  Weight: 1.4 kg

DRUGS (9)
  1. HALDOL [Suspect]
     Indication: FOETAL EXPOSURE DURING PREGNANCY
     Dosage: MOTHER WAS TREATED WITH 5 MG TWICE DAILY
     Route: 064
     Dates: start: 20120516
  2. EXTENCILLINE [Suspect]
     Indication: FOETAL EXPOSURE DURING PREGNANCY
     Dosage: MOTHER RECEIVED 2.4 MIU 1 PER 1 WEEK
     Route: 064
     Dates: start: 20120517
  3. ROCEPHIN [Suspect]
     Indication: FOETAL EXPOSURE DURING PREGNANCY
     Dosage: MOTHER RECEIVED 2 G PER DAY
     Route: 064
     Dates: start: 20120516, end: 20120516
  4. TRUVADA [Suspect]
     Indication: FOETAL EXPOSURE DURING PREGNANCY
     Dosage: MOTHER RECEIVED ONE DOSE PER DAY
     Route: 064
     Dates: start: 20120517
  5. ISENTRESS [Suspect]
     Indication: FOETAL EXPOSURE DURING PREGNANCY
     Dosage: 1 PER 1 DAY
     Route: 064
     Dates: start: 20120517
  6. FERINJECT [Concomitant]
     Indication: PRODUCT USED FOR UNKNOWN INDICATION
     Dosage: 1 G
     Route: 064
     Dates: start: 20120517, end: 20120517
  7. ADALAT [Concomitant]
     Indication: PRODUCT USED FOR UNKNOWN INDICATION
     Dosage: MOTHER RECEIVED 20 MG 3 PER DAY
     Route: 064
     Dates: start: 20120516
  8. UTROGESTAN [Concomitant]
     Indication: PRODUCT USED FOR UNKNOWN INDICATION
     Dosage: 200 MG ONE PER DAY
     Route: 064
     Dates: start: 20120516
  9. MAGNESIUM ASPARTATE HYDROCHLORIDE [Concomitant]
     Indication: PRODUCT USED FOR UNKNOWN INDICATION
     Dosage: 200 MG ONE PER DAY
     Route: 064
     Dates: start: 20120516

REACTIONS (5)
  - Hyperbilirubinaemia [Recovered/Resolved]
  - Premature baby [Not Recovered/Not Resolved]
  - Transient tachypnoea of the newborn [Recovered/Resolved]
  - Normochromic normocytic anaemia [Recovered/Resolved]
  - Jaundice neonatal [Recovered/Resolved]
